FAERS Safety Report 4783571-5 (Version None)
Quarter: 2005Q3

REPORT INFORMATION
  Report Type: 
  Country: None (occurrence: None)
  Receive Date: 20050929
  Receipt Date: 20050920
  Transmission Date: 20060218
  Serious: Yes (Life-Threatening, Hospitalization)
  Sender: FDA-Public Use
  Company Number: US-JNJFOC-20050104149

PATIENT
  Sex: Male
  Weight: 13 kg

DRUGS (7)
  1. CHILDREN'S TYLENOL [Suspect]
  2. CHILDREN'S TYLENOL [Suspect]
     Dosage: NO MORE THAN TWICE DAILY, INTERMITTENTLY FOR 3 TO 4 WKS THEN 2 DOSES DAILY FOR APPROXIMATELY 1 WEEK
  3. NYQUIL [Suspect]
  4. NYQUIL [Suspect]
  5. NYQUIL [Suspect]
  6. NYQUIL [Suspect]
  7. NYQUIL [Suspect]

REACTIONS (43)
  - ACTIVATED PARTIAL THROMBOPLASTIN TIME PROLONGED [None]
  - BLOOD CREATININE INCREASED [None]
  - BLOOD GLUCOSE DECREASED [None]
  - BLOOD POTASSIUM INCREASED [None]
  - COAGULOPATHY [None]
  - COMMUNICATION DISORDER [None]
  - DEHYDRATION [None]
  - DENTAL CARIES [None]
  - DEVELOPMENTAL COORDINATION DISORDER [None]
  - DIET REFUSAL [None]
  - DRUG TOXICITY [None]
  - EPSTEIN-BARR VIRUS ANTIBODY POSITIVE [None]
  - FALL [None]
  - GAIT DISTURBANCE [None]
  - GINGIVAL HYPERPLASIA [None]
  - HAEMATEMESIS [None]
  - HAEMATOCRIT DECREASED [None]
  - HAEMOGLOBIN DECREASED [None]
  - HEART RATE INCREASED [None]
  - HEPATIC ENCEPHALOPATHY [None]
  - HEPATIC FAILURE [None]
  - HEPATOTOXICITY [None]
  - IMMUNOSUPPRESSION [None]
  - INFLUENZA [None]
  - INJECTION SITE HAEMORRHAGE [None]
  - INTERNATIONAL NORMALISED RATIO INCREASED [None]
  - LIVER TRANSPLANT [None]
  - LUNG INFILTRATION [None]
  - OCCULT BLOOD POSITIVE [None]
  - OXYGEN SATURATION DECREASED [None]
  - PLEURAL EFFUSION [None]
  - PROTHROMBIN TIME PROLONGED [None]
  - PUPILLARY REFLEX IMPAIRED [None]
  - PYREXIA [None]
  - RESPIRATORY RATE INCREASED [None]
  - SOMNOLENCE [None]
  - SPEECH DISORDER [None]
  - STRESS [None]
  - UNRESPONSIVE TO PAIN STIMULI [None]
  - VARICELLA [None]
  - VIRAL INFECTION [None]
  - VOMITING [None]
  - WHITE BLOOD CELL COUNT INCREASED [None]
